FAERS Safety Report 6485273-6 (Version None)
Quarter: 2009Q4

REPORT INFORMATION
  Report Type: 
  Country: None (occurrence: None)
  Receive Date: 20091209
  Receipt Date: 20091203
  Transmission Date: 20100525
  Serious: Yes (Other)
  Sender: FDA-Public Use
  Company Number: GB-MERCK-0912GBR00021

PATIENT
  Age: 70 Year
  Sex: Female
  Weight: 67 kg

DRUGS (4)
  1. ZETIA [Suspect]
     Indication: HYPERCHOLESTEROLAEMIA
     Route: 048
     Dates: start: 20090625, end: 20091114
  2. AMILORIDE HYDROCHLORIDE AND FUROSEMIDE [Concomitant]
     Route: 065
     Dates: start: 20040114
  3. ESTRADIOL AND NORETHINDRONE ACETATE [Concomitant]
     Route: 065
     Dates: start: 20060328
  4. FLOXACILLIN [Concomitant]
     Route: 065
     Dates: end: 20091027

REACTIONS (4)
  - MOBILITY DECREASED [None]
  - MYALGIA [None]
  - PAIN [None]
  - PAIN IN EXTREMITY [None]
